FAERS Safety Report 8283545 (Version 3)
Quarter: 2012Q4

REPORT INFORMATION
  Report Type: 
  Country: FR (occurrence: FR)
  Receive Date: 20111212
  Receipt Date: 20120920
  Transmission Date: 20130627
  Serious: Yes (Other)
  Sender: FDA-Public Use
  Company Number: FR-PFIZER INC-2011295511

PATIENT
  Age: 5 Year
  Sex: Male
  Weight: 20 kg

DRUGS (2)
  1. BENEFIX [Suspect]
     Indication: HAEMATOMA
     Dosage: 1000 IU, 1x/day, as needed
     Route: 042
     Dates: start: 20110928, end: 20110929
  2. BENEFIX [Suspect]
     Dosage: 1000 IU, alternate day, as needed
     Route: 042
     Dates: start: 20111001, end: 20111007

REACTIONS (3)
  - Hypersensitivity [Recovered/Resolved]
  - Chills [Recovered/Resolved]
  - Feeling cold [Recovered/Resolved]
